APPROVED DRUG PRODUCT: POTASSIUM CITRATE
Active Ingredient: POTASSIUM CITRATE
Strength: 5MEQ
Dosage Form/Route: TABLET, EXTENDED RELEASE;ORAL
Application: A213986 | Product #001
Applicant: TORRENT PHARMACEUTICALS LTD
Approved: Feb 6, 2024 | RLD: No | RS: No | Type: DISCN